FAERS Safety Report 4928459-1 (Version None)
Quarter: 2006Q1

REPORT INFORMATION
  Report Type: 
  Country: None (occurrence: None)
  Receive Date: 20060223
  Receipt Date: 20060131
  Transmission Date: 20060701
  Serious: Yes (Hospitalization, Other)
  Sender: FDA-Public Use
  Company Number: US200602000655

PATIENT
  Age: 88 Year
  Sex: Female
  Weight: 39.5 kg

DRUGS (2)
  1. FORTEO [Suspect]
     Indication: OSTEOPOROSIS
     Dates: start: 20050301
  2. FORTEO [Concomitant]

REACTIONS (8)
  - ASTHENIA [None]
  - DEVICE FAILURE [None]
  - FALL [None]
  - FATIGUE [None]
  - HIP FRACTURE [None]
  - MALAISE [None]
  - PHARMACEUTICAL PRODUCT COMPLAINT [None]
  - WEIGHT GAIN POOR [None]
